FAERS Safety Report 9206268 (Version 2)
Quarter: 2013Q2

REPORT INFORMATION
  Report Type: Spontaneous
  Country: US (occurrence: US)
  Receive Date: 20130403
  Receipt Date: 20130426
  Transmission Date: 20140414
  Serious: Yes (Other)
  Sender: FDA-Public Use
  Company Number: US-PFIZER INC-2013102182

PATIENT
  Age: 60 Year
  Sex: Male
  Weight: 104 kg

DRUGS (4)
  1. VIAGRA [Suspect]
     Indication: ERECTILE DYSFUNCTION
     Dosage: 25 MG, AS NEEDED
     Route: 048
     Dates: start: 2010, end: 201303
  2. LANTUS [Concomitant]
     Indication: DIABETES MELLITUS
     Dosage: 40 IU, 1X/DAY
  3. NOVOLOG [Concomitant]
     Indication: DIABETES MELLITUS
     Dosage: UNK, 1X/DAY
  4. CAVERJECT [Concomitant]
     Indication: ERECTILE DYSFUNCTION
     Dosage: UNK, AS NEEDED

REACTIONS (3)
  - Visual impairment [Unknown]
  - Vision blurred [Unknown]
  - Headache [Unknown]
